FAERS Safety Report 4375416-2 (Version None)
Quarter: 2004Q2

REPORT INFORMATION
  Report Type: 
  Country: None (occurrence: None)
  Receive Date: 20040602
  Receipt Date: 20040513
  Transmission Date: 20050107
  Serious: Yes (Death)
  Sender: FDA-Public Use
  Company Number: MEDI-0001905

PATIENT
  Sex: Male
  Weight: 83.0083 kg

DRUGS (5)
  1. ETHYOL [Suspect]
     Indication: CHEMOTHERAPY
     Dosage: 500 MG, QD, SUBCUTANEOUS
     Route: 058
     Dates: start: 20040419, end: 20040503
  2. ETHYOL [Suspect]
     Indication: RADIOTHERAPY
     Dosage: 500 MG, QD, SUBCUTANEOUS
     Route: 058
     Dates: start: 20040419, end: 20040503
  3. CISPLATIN [Concomitant]
  4. RADIATION THERAPY [Concomitant]
  5. ALLEGRA [Concomitant]

REACTIONS (2)
  - CORONARY ARTERY OCCLUSION [None]
  - MYOCARDIAL INFARCTION [None]
